FAERS Safety Report 4576607-8 (Version None)
Quarter: 2005Q1

REPORT INFORMATION
  Report Type: 
  Country: None (occurrence: None)
  Receive Date: 20050118
  Receipt Date: 20040924
  Transmission Date: 20050727
  Serious: Yes (Hospitalization)
  Sender: FDA-Public Use
  Company Number: 2004065070

PATIENT
  Sex: Female

DRUGS (1)
  1. GEODON [Suspect]
     Indication: AGITATION
     Dosage: INTRAMUSCULAR
     Route: 030

REACTIONS (1)
  - ELECTROCARDIOGRAM QT CORRECTED INTERVAL PROLONGED [None]
